FAERS Safety Report 4772238-5 (Version None)
Quarter: 2005Q3

REPORT INFORMATION
  Report Type: 
  Country: None (occurrence: None)
  Receive Date: 20050919
  Receipt Date: 20050309
  Transmission Date: 20060218
  Serious: No
  Sender: FDA-Public Use
  Company Number: US-BRISTOL-MYERS SQUIBB COMPANY-12892246

PATIENT
  Age: 69 Year
  Sex: Male

DRUGS (1)
  1. DEFINITY [Suspect]
     Indication: ECHOCARDIOGRAM
     Dosage: ^DILUTED BOLUS ACCT MIXES COMPLETE VIAL INTO 20CC SYRINGE (1.5 DEFINITY AND 18.5 SALINE)^
     Route: 040
     Dates: start: 20050214, end: 20050214

REACTIONS (1)
  - BACK PAIN [None]
